FAERS Safety Report 7476916-9 (Version None)
Quarter: 2011Q2

REPORT INFORMATION
  Report Type: 
  Country: None (occurrence: None)
  Receive Date: 20110512
  Receipt Date: 20110504
  Transmission Date: 20111010
  Serious: Yes (Hospitalization)
  Sender: FDA-Public Use
  Company Number: US-EISAI INC-E2020-06745-SOL-US

PATIENT

DRUGS (10)
  1. LOPRESSOR [Concomitant]
     Route: 048
  2. PLAVIX [Concomitant]
     Route: 048
  3. ARICEPT [Suspect]
     Route: 048
  4. CELEXA [Concomitant]
     Route: 048
  5. AMBIEN [Concomitant]
     Route: 048
  6. CLARITIN [Concomitant]
     Route: 048
  7. ZOCOR [Concomitant]
     Route: 048
  8. ACETYL SALICYLIC ACID USP BAT [Concomitant]
     Route: 048
  9. TIKOSYN [Suspect]
     Route: 048
  10. PEPCID [Concomitant]
     Route: 048

REACTIONS (3)
  - REITER'S SYNDROME [None]
  - CORONARY ARTERY OCCLUSION [None]
  - ATRIAL FIBRILLATION [None]
